FAERS Safety Report 4992093-8 (Version None)
Quarter: 2006Q2

REPORT INFORMATION
  Report Type: 
  Country: None (occurrence: None)
  Receive Date: 20060504
  Receipt Date: 20051004
  Transmission Date: 20061013
  Serious: Yes (Death, Hospitalization, Other)
  Sender: FDA-Public Use
  Company Number: US-MERCK-0510USA03909

PATIENT
  Age: 75 Year
  Sex: Female
  Weight: 59 kg

DRUGS (4)
  1. VIOXX [Suspect]
     Indication: ARTHRITIS
     Route: 048
     Dates: start: 20010824, end: 20040316
  2. VIOXX [Suspect]
     Indication: PAIN MANAGEMENT
     Route: 048
     Dates: start: 20010824, end: 20040316
  3. TYLENOL (CAPLET) [Concomitant]
     Route: 065
  4. NORVASC [Concomitant]
     Route: 065
     Dates: start: 20010614, end: 20040118

REACTIONS (26)
  - ATROPHY [None]
  - BACK PAIN [None]
  - BREAST PAIN [None]
  - CARDIO-RESPIRATORY ARREST [None]
  - CELLULITIS [None]
  - CEREBROVASCULAR ACCIDENT [None]
  - CEREBROVASCULAR DISORDER [None]
  - CHEST INJURY [None]
  - CLAVICLE FRACTURE [None]
  - CONFUSIONAL STATE [None]
  - CONTUSION [None]
  - EXCORIATION [None]
  - FALL [None]
  - GASTRITIS [None]
  - HIATUS HERNIA [None]
  - IRON DEFICIENCY ANAEMIA [None]
  - JOINT INJURY [None]
  - MENTAL STATUS CHANGES [None]
  - MYOCARDIAL INFARCTION [None]
  - OEDEMA PERIPHERAL [None]
  - OSTEOARTHRITIS [None]
  - OSTEOPOROSIS [None]
  - POLYP COLORECTAL [None]
  - SEPSIS [None]
  - THERMAL BURN [None]
  - URINARY TRACT INFECTION [None]
